FAERS Safety Report 5913884-2 (Version None)
Quarter: 2008Q4

REPORT INFORMATION
  Report Type: 
  Country: None (occurrence: None)
  Receive Date: 20081009
  Receipt Date: 20080930
  Transmission Date: 20090506
  Serious: Yes (Hospitalization)
  Sender: FDA-Public Use
  Company Number: B0535600A

PATIENT
  Age: 65 Year
  Sex: Female
  Weight: 57 kg

DRUGS (2)
  1. VALTREX [Suspect]
     Indication: HERPES ZOSTER
     Dosage: 500MG PER DAY
     Route: 048
     Dates: start: 20080901, end: 20080901
  2. VALTREX [Suspect]
     Dosage: 250MG PER DAY
     Route: 048
     Dates: start: 20080902, end: 20080902

REACTIONS (9)
  - CSF GLUCOSE DECREASED [None]
  - CSF GLUCOSE INCREASED [None]
  - CSF GRANULOCYTE COUNT ABNORMAL [None]
  - CSF MONOCYTE COUNT INCREASED [None]
  - CSF PROTEIN INCREASED [None]
  - DEPRESSED LEVEL OF CONSCIOUSNESS [None]
  - HALLUCINATION [None]
  - MENINGEAL DISORDER [None]
  - RESTLESSNESS [None]
